FAERS Safety Report 16498535 (Version 1)
Quarter: 2019Q2

REPORT INFORMATION
  Report Type: Spontaneous
  Country: US (occurrence: US)
  Receive Date: 20190629
  Receipt Date: 20190629
  Transmission Date: 20190711
  Serious: Yes (Hospitalization)
  Sender: FDA-Public Use
  Company Number: US-UNITED THERAPEUTICS-UNT-2019-010635

PATIENT
  Age: 45 Year
  Sex: Female
  Weight: 89.8 kg

DRUGS (1)
  1. TYVASO [Suspect]
     Active Substance: TREPROSTINIL
     Indication: PULMONARY ARTERIAL HYPERTENSION
     Dosage: 18-54 ?G, QID
     Dates: start: 20190604

REACTIONS (7)
  - Dyspnoea [Unknown]
  - Rhonchi [Unknown]
  - Pneumonia [Unknown]
  - Crepitations [Unknown]
  - Respiratory tract infection [Unknown]
  - Wheezing [Unknown]
  - Herpes zoster [Unknown]

NARRATIVE: CASE EVENT DATE: 201906
